FAERS Safety Report 7293351-7 (Version None)
Quarter: 2011Q1

REPORT INFORMATION
  Report Type: 
  Country: None (occurrence: None)
  Receive Date: 20110215
  Receipt Date: 20110214
  Transmission Date: 20110831
  Serious: Yes (Hospitalization)
  Sender: FDA-Public Use
  Company Number: GXKR2011DE00630

PATIENT
  Age: 71 Year
  Sex: Male
  Weight: 90 kg

DRUGS (21)
  1. ACETYLSALICYLIC ACID [Suspect]
     Indication: ISCHAEMIC HEART DISEASE PROPHYLAXIS
     Dosage: 100 MG, QD
     Route: 048
     Dates: start: 20081001
  2. EMBOLEX [Concomitant]
     Route: 058
  3. CEFUROXIME [Concomitant]
     Route: 048
  4. OMEPRAZOLE [Concomitant]
     Route: 048
  5. VOLTAREN [Concomitant]
     Route: 048
  6. OXYGESIC [Concomitant]
     Route: 048
  7. BICALUTAMIDE [Concomitant]
     Route: 048
  8. TORSEMIDE [Concomitant]
     Route: 048
  9. CLEXANE [Suspect]
     Indication: THROMBOSIS PROPHYLAXIS
     Dosage: UNK
     Route: 058
     Dates: start: 20091128, end: 20091208
  10. CEFUROXIME [Concomitant]
     Route: 042
  11. BISOPROLOL [Concomitant]
     Route: 048
  12. DIOVAN [Concomitant]
     Route: 048
  13. BIFITERAL ^PHILIPS^ [Concomitant]
     Route: 048
  14. ALLOPURINOL [Concomitant]
     Route: 048
  15. SIMVASTATIN [Concomitant]
     Route: 048
  16. CLOPIDOGREL [Concomitant]
     Route: 048
  17. BERLOSIN [Concomitant]
     Route: 048
  18. NOVAMINSULFON ^BRAUN^ [Concomitant]
     Route: 048
  19. EXFORGE [Concomitant]
     Route: 048
  20. PARACETAMOL [Concomitant]
     Route: 048
  21. CEFUROXIME [Suspect]
     Route: 042

REACTIONS (5)
  - SECRETION DISCHARGE [None]
  - WOUND SECRETION [None]
  - PAIN [None]
  - HAEMATOMA EVACUATION [None]
  - ERYTHEMA [None]
